FAERS Safety Report 9087003 (Version 3)
Quarter: 2014Q2

REPORT INFORMATION
  Report Type: Spontaneous
  Country: US (occurrence: US)
  Receive Date: 20130131
  Receipt Date: 20140604
  Transmission Date: 20141212
  Serious: Yes (Death)
  Sender: FDA-Public Use
  Company Number: US-PFIZER INC-2013033785

PATIENT
  Age: 42 Year
  Sex: Male

DRUGS (2)
  1. ZOLOFT [Suspect]
     Indication: ANXIETY
     Dosage: UNK
     Dates: start: 20110831
  2. WELLBUTRIN [Suspect]
     Indication: ANXIETY
     Dosage: UNK

REACTIONS (1)
  - Completed suicide [Fatal]
